FAERS Safety Report 6252593-X (Version None)
Quarter: 2009Q2

REPORT INFORMATION
  Report Type: 
  Country: None (occurrence: None)
  Receive Date: 20090629
  Receipt Date: 20090617
  Transmission Date: 20091009
  Serious: Yes (Hospitalization)
  Sender: FDA-Public Use
  Company Number: 1-18852126

PATIENT
  Age: 71 Year
  Sex: Male
  Weight: 97.5234 kg

DRUGS (8)
  1. WARFARIN SODIUM [Suspect]
     Indication: ATRIAL FIBRILLATION
     Dosage: 6.5-8MG DAILY, ORAL
     Route: 048
     Dates: start: 20060101
  2. COLACE (DOCUSATE SODIUM) [Suspect]
     Dosage: ORAL
     Route: 048
     Dates: start: 20090101
  3. NORPACE [Concomitant]
  4. PRILOSEC [Concomitant]
  5. TAPAZOLE [Concomitant]
  6. LISINOPRIL [Concomitant]
  7. DIAZEPAM [Concomitant]
  8. ASPIRIN [Concomitant]

REACTIONS (5)
  - APPENDICECTOMY [None]
  - DRUG EFFECT DECREASED [None]
  - DRUG INTERACTION [None]
  - INTERNATIONAL NORMALISED RATIO DECREASED [None]
  - INTESTINAL OBSTRUCTION [None]
